FAERS Safety Report 16354751 (Version 1)
Quarter: 2019Q2

REPORT INFORMATION
  Report Type: Spontaneous
  Country: US (occurrence: US)
  Receive Date: 20190524
  Receipt Date: 20190524
  Transmission Date: 20190711
  Serious: Yes (Other)
  Sender: FDA-Public Use
  Company Number: US-ELI_LILLY_AND_COMPANY-US201905007236

PATIENT
  Sex: Male

DRUGS (2)
  1. HUMULIN 70/30 [Suspect]
     Active Substance: INSULIN HUMAN
     Indication: DIABETES MELLITUS
     Dosage: 70 U, BID(MORNING AND NIGHT)
     Route: 058
  2. HUMULIN 70/30 [Suspect]
     Active Substance: INSULIN HUMAN
     Indication: DIABETES MELLITUS
     Dosage: 70 U, BID(MORNING AND NIGHT)
     Route: 058
     Dates: start: 200905

REACTIONS (3)
  - Gait disturbance [Not Recovered/Not Resolved]
  - Back disorder [Not Recovered/Not Resolved]
  - Incorrect product dosage form administered [Not Recovered/Not Resolved]

NARRATIVE: CASE EVENT DATE: 201405
